FAERS Safety Report 13770002 (Version 3)
Quarter: 2022Q4

REPORT INFORMATION
  Report Type: Report from Study
  Country: US (occurrence: US)
  Receive Date: 20170719
  Receipt Date: 20221003
  Transmission Date: 20230113
  Serious: Yes (Hospitalization)
  Sender: FDA-Public Use
  Company Number: US-TAKEDA-2017TUS015029

PATIENT
  Age: 30 Year
  Sex: Female
  Weight: 66.667 kg

DRUGS (18)
  1. VEDOLIZUMAB [Suspect]
     Active Substance: VEDOLIZUMAB
     Indication: Crohn^s disease
     Dosage: 300 MILLIGRAM
     Route: 042
     Dates: start: 20150601, end: 20170603
  2. FLONASE [Concomitant]
     Active Substance: FLUTICASONE PROPIONATE
     Indication: Multiple allergies
     Dosage: UNK UNK, Q2WEEKS
     Route: 055
     Dates: start: 20160917, end: 20170603
  3. FLONASE [Concomitant]
     Active Substance: FLUTICASONE PROPIONATE
     Dosage: UNK UNK, QD
     Route: 055
     Dates: start: 20160917, end: 20170603
  4. CLARITIN [Concomitant]
     Active Substance: LORATADINE
     Indication: Multiple allergies
     Dosage: UNK, QD
     Route: 048
     Dates: start: 20160917, end: 20170603
  5. ROBITUSSIN (GUAIFENESIN) [Concomitant]
     Active Substance: GUAIFENESIN
     Indication: Nasopharyngitis
     Dosage: 30 MILLILITER
     Route: 048
     Dates: start: 20161225, end: 20170105
  6. TYLENOL [Concomitant]
     Active Substance: ACETAMINOPHEN
     Indication: Nasopharyngitis
     Dosage: UNK
     Route: 048
     Dates: start: 20161225, end: 20170109
  7. TYLENOL [Concomitant]
     Active Substance: ACETAMINOPHEN
     Indication: Hypertension
     Dosage: UNK
     Dates: start: 20170523, end: 20170524
  8. VITAMIN B12 [Concomitant]
     Active Substance: CYANOCOBALAMIN
     Dosage: UNK, QD
     Route: 050
     Dates: start: 20160917, end: 20170603
  9. FOLIC ACID [Concomitant]
     Active Substance: FOLIC ACID
     Dosage: 400 MILLIGRAM, QD
     Route: 048
     Dates: start: 20160917, end: 20161227
  10. FOLIC ACID [Concomitant]
     Active Substance: FOLIC ACID
     Dosage: 800 MICROGRAM, QD
     Route: 048
     Dates: start: 20161228, end: 20170124
  11. FOLIC ACID [Concomitant]
     Active Substance: FOLIC ACID
     Dosage: 800 MILLIGRAM, QD
     Route: 048
     Dates: start: 20161228, end: 20170124
  12. FOLIC ACID [Concomitant]
     Active Substance: FOLIC ACID
     Dosage: 400 MILLIGRAM, QD
     Route: 048
     Dates: start: 20170125, end: 20170603
  13. OMEGA 3 [Concomitant]
     Active Substance: CAPSAICIN
     Dosage: UNK UNK, QD
     Route: 048
     Dates: start: 20161001, end: 20170603
  14. PREVACID [Concomitant]
     Active Substance: LANSOPRAZOLE
     Indication: Dyspepsia
     Dosage: UNK UNK, QD
     Route: 048
     Dates: start: 20161119, end: 20170603
  15. BARIUM SULFATE [Concomitant]
     Active Substance: BARIUM SULFATE
     Indication: Magnetic resonance imaging
     Dosage: 900 MILLILITER, QD
     Route: 048
     Dates: start: 20160920, end: 20160920
  16. GADOLINIUM [Concomitant]
     Active Substance: GADOLINIUM
     Indication: Magnetic resonance imaging
     Dosage: 10 MILLILITER, QD
     Route: 042
     Dates: start: 20160920, end: 20160920
  17. METOCLOPRAMIDE HYDROCHLORIDE [Concomitant]
     Active Substance: METOCLOPRAMIDE HYDROCHLORIDE
     Indication: Morning sickness
     Dosage: 10 MILLIGRAM
     Route: 048
     Dates: start: 20160917, end: 20161222
  18. BETAMETHASONE [Concomitant]
     Active Substance: BETAMETHASONE
     Indication: Lung disorder
     Dosage: UNK UNK, QD
     Route: 030
     Dates: start: 20170524, end: 20170524

REACTIONS (2)
  - Hypertension [Unknown]
  - Pregnancy [Unknown]

NARRATIVE: CASE EVENT DATE: 20160917
